FAERS Safety Report 14679557 (Version 1)
Quarter: 2018Q1

REPORT INFORMATION
  Report Type: Spontaneous
  Country: CA (occurrence: CA)
  Receive Date: 20180326
  Receipt Date: 20180326
  Transmission Date: 20180509
  Serious: Yes (Hospitalization, Disabling)
  Sender: FDA-Public Use
  Company Number: CA-BAYER-2018-051001

PATIENT
  Age: 25 Year
  Sex: Male
  Weight: 65.76 kg

DRUGS (1)
  1. CIPRO [Suspect]
     Active Substance: CIPROFLOXACIN HYDROCHLORIDE
     Indication: URINARY TRACT INFECTION
     Dosage: 500 MG, BID
     Route: 048

REACTIONS (13)
  - Asthenia [Unknown]
  - Urinary retention [Unknown]
  - Headache [Unknown]
  - Constipation [Unknown]
  - Sensory disturbance [Unknown]
  - Gait disturbance [Unknown]
  - Dry mouth [Unknown]
  - Insomnia [Unknown]
  - Visual impairment [Unknown]
  - Anxiety [Unknown]
  - Arthralgia [Unknown]
  - Erectile dysfunction [Unknown]
  - Tinnitus [Unknown]
